FAERS Safety Report 18635933 (Version 2)
Quarter: 2021Q1

REPORT INFORMATION
  Report Type: Spontaneous
  Country: IT (occurrence: IT)
  Receive Date: 20201218
  Receipt Date: 20210120
  Transmission Date: 20210419
  Serious: Yes (Death, Life-Threatening, Hospitalization, Other)
  Sender: FDA-Public Use
  Company Number: IT-PFIZER INC-2020489220

PATIENT
  Age: 68 Year
  Sex: Male

DRUGS (4)
  1. TICAGRELOR. [Concomitant]
     Active Substance: TICAGRELOR
     Dosage: 180 MG
     Route: 048
  2. ACETYLSALICYLIC ACID [Concomitant]
     Active Substance: ASPIRIN
     Dosage: 300 MG
     Route: 042
  3. HEPARIN SODIUM. [Suspect]
     Active Substance: HEPARIN SODIUM
     Dosage: 7500 IU
     Route: 042
  4. ENOXAPARIN [Suspect]
     Active Substance: ENOXAPARIN
     Indication: PNEUMONIA
     Dosage: 300 MG

REACTIONS (4)
  - Heparin-induced thrombocytopenia [Fatal]
  - Coronary artery occlusion [Fatal]
  - Haemodynamic instability [Fatal]
  - Coronary artery thrombosis [Fatal]
